FAERS Safety Report 26112532 (Version 1)
Quarter: 2025Q4

REPORT INFORMATION
  Report Type: Spontaneous
  Country: US (occurrence: US)
  Receive Date: 20251202
  Receipt Date: 20251202
  Transmission Date: 20260117
  Serious: No
  Sender: BAYER HEALTHCARE LLC
  Company Number: US-BAYER-2025A158426

PATIENT
  Age: 89 Year
  Sex: Male

DRUGS (3)
  1. CLARITIN [Suspect]
     Active Substance: LORATADINE
     Indication: Hypersensitivity
     Dosage: 1 DF, QD
     Route: 048
     Dates: start: 20251130, end: 20251201
  2. CLARITIN [Suspect]
     Active Substance: LORATADINE
     Indication: Nasopharyngitis
  3. ASPIRIN [Concomitant]
     Active Substance: ASPIRIN
     Dosage: TAKING FOR OVER 40 OR 50 YEARS
     Route: 048

REACTIONS (3)
  - Epistaxis [None]
  - Nasal congestion [None]
  - Drug effect less than expected [None]

NARRATIVE: CASE EVENT DATE: 20251130
